FAERS Safety Report 10809919 (Version 3)
Quarter: 2016Q1

REPORT INFORMATION
  Report Type: Spontaneous
  Country: US (occurrence: US)
  Receive Date: 20150212
  Receipt Date: 20160309
  Transmission Date: 20160525
  Serious: Yes (Other)
  Sender: FDA-Public Use
  Company Number: US-H14001-15-00233

PATIENT
  Age: 36 Year
  Sex: Female

DRUGS (1)
  1. FENTANYL CITRATE INJECTION USP (FENTANYL CITRATE) [Suspect]
     Active Substance: FENTANYL CITRATE
     Indication: LABOUR PAIN
     Route: 042
     Dates: start: 20150206

REACTIONS (4)
  - Syncope [Unknown]
  - Blood pressure decreased [Recovered/Resolved]
  - Procedural complication [None]
  - Exposure during pregnancy [Recovered/Resolved]

NARRATIVE: CASE EVENT DATE: 20150206
